FAERS Safety Report 8997127 (Version 4)
Quarter: 2013Q3

REPORT INFORMATION
  Report Type: Spontaneous
  Country: FR (occurrence: None)
  Receive Date: 20121221
  Receipt Date: 20130911
  Transmission Date: 20140515
  Serious: Yes (Hospitalization)
  Sender: FDA-Public Use
  Company Number: ACO_33407_2012

PATIENT
  Age: 45 Year
  Sex: Female

DRUGS (4)
  1. FAMPRIDINE-SR (FAMPRIDINE) TABLET [Suspect]
     Indication: MULTIPLE SCLEROSIS
     Route: 048
     Dates: start: 20120629
  2. CELLCEPT (MYCOPHENOLATE MOFETIL) [Concomitant]
  3. LIORESAL (BACLOFEN) [Concomitant]
  4. SEROPRAM (CITALOPRAM HYDROCHLORIDE) [Concomitant]

REACTIONS (1)
  - Liposuction [None]
